FAERS Safety Report 8953447 (Version 1)
Quarter: 2012Q4

REPORT INFORMATION
  Report Type: Report from Study
  Country: US (occurrence: US)
  Receive Date: 20121206
  Receipt Date: 20121206
  Transmission Date: 20130627
  Serious: Yes (Other)
  Sender: FDA-Public Use
  Company Number: US-GLAXOSMITHKLINE-A1004079A

PATIENT
  Age: 65 Year
  Sex: Female
  Weight: 70 kg

DRUGS (15)
  1. ELTROMBOPAG [Suspect]
     Indication: THROMBOCYTOPENIA
     Dosage: 100MG Per day
     Dates: start: 20120914, end: 20121114
  2. GEMCITABINE [Suspect]
     Indication: LIPOSARCOMA
  3. DOCETAXEL [Suspect]
     Indication: LIPOSARCOMA
  4. INSULIN LANTUS [Concomitant]
  5. ASPIRIN [Concomitant]
  6. EMLA CREAM [Concomitant]
  7. MS CONTIN [Concomitant]
  8. CLARITIN [Concomitant]
  9. BENADRYL [Concomitant]
  10. COMPAZINE [Concomitant]
  11. HYDROMORPHONE [Concomitant]
  12. IBUPROFEN [Concomitant]
  13. PHENERGAN [Concomitant]
  14. HYDROXYZINE [Concomitant]
  15. HYDROCORTISONE CREAM [Concomitant]

REACTIONS (2)
  - Pulmonary embolism [Unknown]
  - Pulmonary infarction [Unknown]
